FAERS Safety Report 11552220 (Version 1)
Quarter: 2015Q3

REPORT INFORMATION
  Report Type: Spontaneous
  Country: US (occurrence: None)
  Receive Date: 20150924
  Receipt Date: 20150924
  Transmission Date: 20151125
  Serious: No
  Sender: FDA-Public Use
  Company Number: None

PATIENT
  Age: 76 Year
  Sex: Female
  Weight: 54.43 kg

DRUGS (7)
  1. BARLEY TABLETS [Concomitant]
  2. GLUCOSAMINE CHONDROITIN [Concomitant]
     Active Substance: CHONDROITIN SULFATE (BOVINE)\GLUCOSAMINE HYDROCHLORIDE
  3. ANASTROZOLE. [Concomitant]
     Active Substance: ANASTROZOLE
  4. LEVITHOROXINE [Concomitant]
  5. VIRTAMIN D3 [Concomitant]
  6. FOLIC ACID. [Concomitant]
     Active Substance: FOLIC ACID
  7. DENOSUMAB [Suspect]
     Active Substance: DENOSUMAB

REACTIONS (5)
  - Erythema [None]
  - Pruritus [None]
  - Rash [None]
  - Dysuria [None]
  - Swelling face [None]

NARRATIVE: CASE EVENT DATE: 20150514
